FAERS Safety Report 4681375-5 (Version None)
Quarter: 2005Q2

REPORT INFORMATION
  Report Type: 
  Country: None (occurrence: None)
  Receive Date: 20050601
  Receipt Date: 20050523
  Transmission Date: 20051028
  Serious: Yes (Other)
  Sender: FDA-Public Use
  Company Number: CIP05001211

PATIENT
  Sex: Female

DRUGS (1)
  1. MACRODANTIN [Suspect]
     Indication: URINARY TRACT INFECTION

REACTIONS (10)
  - ABDOMINAL PAIN LOWER [None]
  - BLISTER [None]
  - CAESAREAN SECTION [None]
  - DERMATOSIS [None]
  - DRUG EXPOSURE DURING PREGNANCY [None]
  - ERYTHEMA MULTIFORME [None]
  - PREMATURE LABOUR [None]
  - PYREXIA [None]
  - RASH [None]
  - STEVENS-JOHNSON SYNDROME [None]
